FAERS Safety Report 6624628-3 (Version None)
Quarter: 2010Q1

REPORT INFORMATION
  Report Type: 
  Country: None (occurrence: None)
  Receive Date: 20100310
  Receipt Date: 20091005
  Transmission Date: 20100710
  Serious: No
  Sender: FDA-Public Use
  Company Number: US-BIOGENIDEC-2009BI031993

PATIENT
  Sex: Female

DRUGS (3)
  1. AVONEX [Suspect]
     Indication: MULTIPLE SCLEROSIS
     Route: 030
     Dates: start: 20031126, end: 20050912
  2. AVONEX [Suspect]
     Route: 030
     Dates: start: 20070608, end: 20070715
  3. AVONEX [Suspect]
     Route: 030
     Dates: end: 20080608

REACTIONS (3)
  - ANXIETY [None]
  - DYSPHEMIA [None]
  - FRUSTRATION [None]
